FAERS Safety Report 8939013 (Version 2)
Quarter: 2012Q4

REPORT INFORMATION
  Report Type: 
  Country: US (occurrence: US)
  Receive Date: 20121203
  Receipt Date: 20121211
  Transmission Date: 20130627
  Serious: Yes (Hospitalization, Disabling)
  Sender: FDA-Public Use
  Company Number: US-BAYER-2012-125003

PATIENT
  Age: 23 Year
  Sex: Female

DRUGS (10)
  1. YAZ [Suspect]
     Dosage: UNK
     Dates: start: 200808, end: 20081210
  2. YASMIN [Suspect]
  3. OCELLA [Suspect]
  4. GIANVI [Suspect]
  5. MVI [Concomitant]
     Dosage: daily
  6. MAG OTC [Concomitant]
  7. VITAMIN C [Concomitant]
  8. BREWER^S YEAST [YEAST DRIED] [Concomitant]
  9. ALTACE [Concomitant]
  10. METOPROLOL [Concomitant]

REACTIONS (8)
  - Pulmonary embolism [None]
  - Injury [None]
  - Tachycardia [None]
  - Hypokalaemia [None]
  - Deformity [None]
  - Anxiety [None]
  - Anhedonia [None]
  - Pain [None]
